FAERS Safety Report 18160611 (Version 1)
Quarter: 2020Q3

REPORT INFORMATION
  Report Type: Spontaneous
  Country: US (occurrence: US)
  Receive Date: 20200817
  Receipt Date: 20200817
  Transmission Date: 20201103
  Serious: Yes (Death, Hospitalization, Other)
  Sender: FDA-Public Use
  Company Number: US-PURDUE-USA-2020-0161506

PATIENT
  Age: 53 Year
  Sex: Female

DRUGS (21)
  1. MS CONTIN [Suspect]
     Active Substance: MORPHINE SULFATE
     Indication: PAIN
     Dosage: 30 MG, Q8H
     Route: 048
  2. MORPHINE SULFATE EXTENDED?RELEASE TABLETS (RHODES 74?769, 74?862) [Suspect]
     Active Substance: MORPHINE SULFATE
     Indication: PAIN
     Dosage: 30 MG, UNK
     Route: 048
  3. OXYCODONE HCL CR TABLETS (SIMILAR TO NDA 22?272) [Suspect]
     Active Substance: OXYCODONE HYDROCHLORIDE
     Indication: PAIN
     Dosage: UNK
     Route: 048
  4. PAXIL [Concomitant]
     Active Substance: PAROXETINE HYDROCHLORIDE
     Indication: PRODUCT USED FOR UNKNOWN INDICATION
     Dosage: 40 MG, DAILY
     Route: 048
  5. ATIVAN [Concomitant]
     Active Substance: LORAZEPAM
     Indication: PRODUCT USED FOR UNKNOWN INDICATION
     Dosage: 1 MG, TID
     Route: 048
  6. MS CONTIN [Suspect]
     Active Substance: MORPHINE SULFATE
     Dosage: 30 MG, BID
     Route: 048
  7. OXYCODONE HCL TABLETS (RHODES 91?490) [Suspect]
     Active Substance: OXYCODONE HYDROCHLORIDE
     Indication: PAIN
     Dosage: UNK
     Route: 048
  8. OXYCODONE/ ACETAMINOPHEN TABLETS [Suspect]
     Active Substance: ACETAMINOPHEN\OXYCODONE HYDROCHLORIDE
     Indication: BREAKTHROUGH PAIN
     Dosage: 5/500 MG, UNK
     Route: 048
  9. OXYCONTIN [Suspect]
     Active Substance: OXYCODONE HYDROCHLORIDE
     Indication: PAIN
     Dosage: UNK
     Route: 048
  10. DILAUDID [Suspect]
     Active Substance: HYDROMORPHONE HYDROCHLORIDE
     Indication: PAIN
     Dosage: UNK
     Route: 048
  11. HYDROCODONE BITARTRATE AND ACETAMINOPHEN [Suspect]
     Active Substance: ACETAMINOPHEN\HYDROCODONE BITARTRATE
     Indication: PAIN
     Dosage: 5/500 MG, UNK
     Route: 048
  12. OXYFAST [Suspect]
     Active Substance: OXYCODONE
     Indication: PRODUCT USED FOR UNKNOWN INDICATION
     Dosage: UNK
     Route: 065
  13. PAXIL [Concomitant]
     Active Substance: PAROXETINE HYDROCHLORIDE
     Dosage: 20 MG, UNK
  14. MS CONTIN [Suspect]
     Active Substance: MORPHINE SULFATE
     Dosage: 60 MG, UNK
     Route: 048
  15. OXYCODONE/ ACETAMINOPHEN TABLETS [Suspect]
     Active Substance: ACETAMINOPHEN\OXYCODONE HYDROCHLORIDE
     Dosage: 5/325 MG, UNK
     Route: 048
  16. LACTAID [Concomitant]
     Active Substance: LACTASE
     Indication: PRODUCT USED FOR UNKNOWN INDICATION
     Dosage: UNK, PRN
     Route: 065
  17. RESTORIL [Concomitant]
     Active Substance: TEMAZEPAM
     Indication: PRODUCT USED FOR UNKNOWN INDICATION
     Dosage: 15 MG, HS
     Route: 048
  18. ATARAX [Concomitant]
     Active Substance: HYDROXYZINE HYDROCHLORIDE
     Indication: PRODUCT USED FOR UNKNOWN INDICATION
     Dosage: 50 MG, UNK
     Route: 048
  19. NEURONTIN [Concomitant]
     Active Substance: GABAPENTIN
     Indication: PRODUCT USED FOR UNKNOWN INDICATION
     Dosage: 300 MG, TID
     Route: 048
  20. MICONAZOLE. [Concomitant]
     Active Substance: MICONAZOLE
     Indication: PRODUCT USED FOR UNKNOWN INDICATION
     Dosage: 2 MG, UNK
     Route: 067
  21. ZOFRAN [Concomitant]
     Active Substance: ONDANSETRON HYDROCHLORIDE
     Indication: PRODUCT USED FOR UNKNOWN INDICATION
     Dosage: 4?8 MG, PRN
     Route: 048

REACTIONS (21)
  - Parkinson^s disease [Unknown]
  - Decubitus ulcer [Unknown]
  - Hepatitis [Fatal]
  - Short-bowel syndrome [Fatal]
  - Bladder catheterisation [Unknown]
  - Nausea [Unknown]
  - Atrial fibrillation [Unknown]
  - Sepsis [Unknown]
  - Hyperosmolar state [Unknown]
  - Urinary tract infection [Unknown]
  - Angina pectoris [Unknown]
  - Colostomy [Unknown]
  - Pancreatitis acute [Unknown]
  - Dementia Alzheimer^s type [Unknown]
  - Diarrhoea [Unknown]
  - Drug dependence [Unknown]
  - Cerebral palsy [Unknown]
  - Coronary artery disease [Unknown]
  - Weight decreased [Unknown]
  - Anaemia [Unknown]
  - Pain [Unknown]

NARRATIVE: CASE EVENT DATE: 20060122
